FAERS Safety Report 25395019 (Version 1)
Quarter: 2025Q2

REPORT INFORMATION
  Report Type: Spontaneous
  Country: US (occurrence: None)
  Receive Date: 20250603
  Receipt Date: 20250603
  Transmission Date: 20250716
  Serious: No
  Sender: FDA-CTU
  Company Number: None

PATIENT
  Age: 71 Year
  Sex: Male

DRUGS (1)
  1. ODOMZO [Suspect]
     Active Substance: SONIDEGIB
     Indication: Basal cell carcinoma
     Dosage: FREQUENCY: TAKE 1 CAPSULE BY MOUTH DAILY ON EMPTY STOMACH AT LEAST 1 HOUR BEFORE OR 2 HOURS AFTER?
     Route: 048
     Dates: start: 202503

REACTIONS (1)
  - Cerebrovascular accident [None]
